FAERS Safety Report 23441828 (Version 1)
Quarter: 2024Q1

REPORT INFORMATION
  Report Type: Spontaneous
  Country: US (occurrence: US)
  Receive Date: 20240125
  Receipt Date: 20240125
  Transmission Date: 20240410
  Serious: Yes (Hospitalization)
  Sender: FDA-Public Use
  Company Number: US-MACLEODS PHARMACEUTICALS US LTD-MAC2024045495

PATIENT

DRUGS (4)
  1. NIACIN [Suspect]
     Active Substance: NIACIN
     Indication: Blood cholesterol increased
     Dosage: 100 MILLIGRAM, QD, EXTENDED-RELEASE CAPSULE
     Route: 065
  2. NIACIN [Suspect]
     Active Substance: NIACIN
     Dosage: 500 MILLIGRAM, QD (IMMEDIATE-RELEASE FORMULATION)
     Route: 065
  3. LISINOPRIL [Concomitant]
     Active Substance: LISINOPRIL
     Indication: Product used for unknown indication
     Dosage: UNK
     Route: 065
  4. PANTOPRAZOLE [Concomitant]
     Active Substance: PANTOPRAZOLE
     Indication: Product used for unknown indication
     Dosage: UNK, PRN (AS NEEDED)
     Route: 065

REACTIONS (4)
  - Acute myocardial infarction [Recovered/Resolved]
  - Urinary incontinence [Recovered/Resolved]
  - Syncope [Recovered/Resolved]
  - Flushing [Recovered/Resolved]
